FAERS Safety Report 17333467 (Version 1)
Quarter: 2020Q1

REPORT INFORMATION
  Report Type: Spontaneous
  Country: GB (occurrence: GB)
  Receive Date: 20200128
  Receipt Date: 20200128
  Transmission Date: 20200409
  Serious: Yes (Other)
  Sender: FDA-Public Use
  Company Number: GB-PFIZER INC-2020029126

PATIENT
  Age: 26 Year
  Sex: Male

DRUGS (6)
  1. IBUPROFEN. [Suspect]
     Active Substance: IBUPROFEN
     Indication: PAIN
     Dosage: 400 MG, UNK
     Route: 048
     Dates: start: 20191217, end: 20191217
  2. CLONIDINE. [Concomitant]
     Active Substance: CLONIDINE
     Dosage: UNK
  3. MELATONIN [Concomitant]
     Active Substance: MELATONIN
     Dosage: UNK
  4. AMITRIPTYLINE [Concomitant]
     Active Substance: AMITRIPTYLINE
     Dosage: UNK
  5. PROPOFOL. [Concomitant]
     Active Substance: PROPOFOL
     Dosage: UNK
  6. GABAPENTIN. [Concomitant]
     Active Substance: GABAPENTIN
     Dosage: UNK

REACTIONS (4)
  - Erythema [Recovered/Resolved]
  - Pallor [Recovered/Resolved]
  - Flushing [Recovered/Resolved]
  - Urticaria [Recovered/Resolved]

NARRATIVE: CASE EVENT DATE: 20191217
